FAERS Safety Report 5856856-9 (Version None)
Quarter: 2008Q3

REPORT INFORMATION
  Report Type: 
  Country: None (occurrence: None)
  Receive Date: 20080825
  Receipt Date: 20080818
  Transmission Date: 20090109
  Serious: Yes (Life-Threatening, Hospitalization)
  Sender: FDA-Public Use
  Company Number: JP-ASTRAZENECA-2008SE03090

PATIENT
  Sex: Male
  Weight: 64 kg

DRUGS (11)
  1. BLOPRESS [Suspect]
     Indication: HYPERTENSION
     Route: 048
     Dates: start: 20080228, end: 20080511
  2. BASEN [Suspect]
     Indication: TYPE 2 DIABETES MELLITUS
     Route: 048
     Dates: start: 19950101, end: 20080509
  3. EXCEGRAN [Suspect]
     Route: 048
     Dates: start: 20080403, end: 20080510
  4. AMLODIPINE BESYLATE [Suspect]
     Indication: HYPERTENSION
     Route: 048
     Dates: start: 20080326, end: 20080511
  5. AMARYL [Suspect]
     Indication: TYPE 2 DIABETES MELLITUS
     Route: 048
     Dates: start: 20080303, end: 20080509
  6. NELBIS [Suspect]
     Indication: TYPE 2 DIABETES MELLITUS
     Route: 048
     Dates: start: 20080303, end: 20080509
  7. GASMOTIN [Suspect]
     Route: 048
     Dates: start: 20080307, end: 20080511
  8. LIPITOR [Suspect]
     Route: 048
     Dates: start: 20080424, end: 20080511
  9. AMOBAN [Suspect]
     Route: 048
     Dates: start: 20080424, end: 20080507
  10. VONTROL [Suspect]
     Dosage: ON AN IRREGULAR BASIS
     Route: 048
     Dates: start: 20071124, end: 20080507
  11. PL [Suspect]
     Route: 048
     Dates: start: 20080424, end: 20080501

REACTIONS (3)
  - BONE MARROW FAILURE [None]
  - DERMATITIS EXFOLIATIVE [None]
  - GASTROENTERITIS EOSINOPHILIC [None]
